FAERS Safety Report 9326977 (Version 1)
Quarter: 2013Q2

REPORT INFORMATION
  Report Type: Spontaneous
  Country: US (occurrence: US)
  Receive Date: 20130604
  Receipt Date: 20130604
  Transmission Date: 20140414
  Serious: No
  Sender: FDA-Public Use
  Company Number: US-AMGEN-USASP2013035497

PATIENT
  Age: 59 Year
  Sex: Female
  Weight: 57.6 kg

DRUGS (5)
  1. ENBREL [Suspect]
     Indication: ARTHROPATHY
     Dosage: UNK
  2. METHOTREXATE [Suspect]
     Indication: ARTHROPATHY
     Dosage: UNK
  3. IMURAN /00001501/ [Suspect]
     Indication: ARTHROPATHY
     Dosage: UNK
  4. HUMIRA [Suspect]
     Indication: ARTHROPATHY
     Dosage: UNK
  5. METOPROLOL [Concomitant]
     Indication: PALPITATIONS
     Dosage: 25 MG, QD

REACTIONS (2)
  - Therapeutic response decreased [Unknown]
  - Herpes zoster [Unknown]
